FAERS Safety Report 7809009-9 (Version None)
Quarter: 2011Q4

REPORT INFORMATION
  Report Type: 
  Country: None (occurrence: None)
  Receive Date: 20111012
  Receipt Date: 20111012
  Transmission Date: 20120403
  Serious: Yes (Death)
  Sender: FDA-Public Use
  Company Number: None

PATIENT
  Age: 69 Year
  Sex: Male
  Weight: 124.5 kg

DRUGS (1)
  1. DEFINITY [Suspect]
     Indication: ECHOCARDIOGRAM
     Dosage: 0.4MG
     Route: 040
     Dates: start: 20110919, end: 20110919

REACTIONS (5)
  - ATRIAL FIBRILLATION [None]
  - OXYGEN SATURATION DECREASED [None]
  - TACHYCARDIA [None]
  - UNRESPONSIVE TO STIMULI [None]
  - PULSE ABSENT [None]
